FAERS Safety Report 6794705-5 (Version None)
Quarter: 2010Q2

REPORT INFORMATION
  Report Type: 
  Country: None (occurrence: None)
  Receive Date: 20100625
  Receipt Date: 20100625
  Transmission Date: 20101027
  Serious: Yes (Other)
  Sender: FDA-Public Use
  Company Number: None

PATIENT
  Age: 12 Year
  Sex: Male
  Weight: 36.2878 kg

DRUGS (1)
  1. CHILDREN'S TYLENOL PLUS MULTI-SYMPTOM COLD [Suspect]
     Indication: HEADACHE
     Dosage: 2 TSP EVERY 4-5 HOURS PO
     Route: 048

REACTIONS (2)
  - DISEASE RECURRENCE [None]
  - HEADACHE [None]
